FAERS Safety Report 9280821 (Version 2)
Quarter: 2013Q3

REPORT INFORMATION
  Report Type: Spontaneous
  Country: US (occurrence: US)
  Receive Date: 20130509
  Receipt Date: 20130919
  Transmission Date: 20140515
  Serious: No
  Sender: FDA-Public Use
  Company Number: US-PFIZER INC-2013139820

PATIENT
  Age: 76 Year
  Sex: Female

DRUGS (7)
  1. XELJANZ [Suspect]
     Indication: RHEUMATOID ARTHRITIS
     Dosage: 5 MG, 2X/DAY
     Route: 048
     Dates: start: 20130501
  2. PROTONIX [Concomitant]
     Dosage: 20 MG, UNK
  3. SYNTHROID [Concomitant]
     Dosage: 25 UG, UNK
  4. LOVASTATIN [Concomitant]
     Dosage: 10 MG, UNK
  5. TOPROL XL [Concomitant]
     Dosage: 25 MG, UNK
  6. HYDROCHLOROTHIAZIDE [Concomitant]
     Dosage: 12.5 MG, UNK
  7. CVS FISH OIL [Concomitant]
     Dosage: 1000 MG, UNK

REACTIONS (2)
  - Contusion [Unknown]
  - Weight increased [Unknown]
